FAERS Safety Report 18396003 (Version 1)
Quarter: 2020Q4

REPORT INFORMATION
  Report Type: Spontaneous
  Country: US (occurrence: US)
  Receive Date: 20201018
  Receipt Date: 20201018
  Transmission Date: 20210114
  Serious: No
  Sender: FDA-Public Use
  Company Number: US-HANGZHOU MINSHENG BINJIANG PHARMACEUTICAL CO., LTD.-2092899

PATIENT
  Sex: Female

DRUGS (3)
  1. ALENDRONATE SODIUM. [Suspect]
     Active Substance: ALENDRONATE SODIUM
     Indication: OSTEOPOROSIS
     Route: 048
  2. VITAMIN C [Suspect]
     Active Substance: ASCORBIC ACID
  3. UNSPECIFIED MEDICATIONS [Concomitant]
     Active Substance: UNSPECIFIED INGREDIENT

REACTIONS (8)
  - Gastrointestinal disorder [Unknown]
  - Gastritis [Recovering/Resolving]
  - Overdose [Not Recovered/Not Resolved]
  - Ligament disorder [Recovered/Resolved]
  - Arthropathy [Recovered/Resolved]
  - Gastrooesophageal reflux disease [Recovering/Resolving]
  - Arthritis [Not Recovered/Not Resolved]
  - Pain [Unknown]
